FAERS Safety Report 17570041 (Version 2)
Quarter: 2020Q1

REPORT INFORMATION
  Report Type: Spontaneous
  Country: CN (occurrence: CN)
  Receive Date: 20200323
  Receipt Date: 20200325
  Transmission Date: 20200409
  Serious: Yes (Hospitalization, Other)
  Sender: FDA-Public Use
  Company Number: CN-009507513-2003CHN006097

PATIENT
  Age: 46 Year
  Sex: Male
  Weight: 40 kg

DRUGS (2)
  1. TIENAM [Suspect]
     Active Substance: CILASTATIN SODIUM\IMIPENEM
     Indication: INFECTION
     Dosage: 1G, QD
     Route: 041
     Dates: start: 20200226, end: 20200229
  2. SODIUM CHLORIDE. [Suspect]
     Active Substance: SODIUM CHLORIDE
     Dosage: 200 MILLILITER
     Route: 041
     Dates: start: 20200226, end: 20200229

REACTIONS (5)
  - Erythema [Recovering/Resolving]
  - Dyspnoea [Not Recovered/Not Resolved]
  - Adverse event [Recovered/Resolved with Sequelae]
  - Haematuria [Recovered/Resolved]
  - Chest discomfort [Not Recovered/Not Resolved]

NARRATIVE: CASE EVENT DATE: 20200227
